FAERS Safety Report 7986623-1 (Version None)
Quarter: 2011Q4

REPORT INFORMATION
  Report Type: 
  Country: None (occurrence: None)
  Receive Date: 20111216
  Receipt Date: 20110208
  Transmission Date: 20120403
  Serious: No
  Sender: FDA-Public Use
  Company Number: US-BRISTOL-MYERS SQUIBB COMPANY-15536402

PATIENT
  Age: 7 Year
  Sex: Male

DRUGS (3)
  1. ABILIFY [Suspect]
     Dates: end: 20110207
  2. MELATONIN [Concomitant]
     Dosage: 1DF=1-3MG,LIQUID MELATONIN
  3. CLARITIN [Concomitant]

REACTIONS (2)
  - MALAISE [None]
  - CRYING [None]
